FAERS Safety Report 22625689 (Version 15)
Quarter: 2025Q1

REPORT INFORMATION
  Report Type: Report from Study
  Country: US (occurrence: US)
  Receive Date: 20230621
  Receipt Date: 20250207
  Transmission Date: 20250409
  Serious: Yes (Hospitalization, Other)
  Sender: TAKEDA
  Company Number: US-TAKEDA-2021TUS053993

PATIENT
  Sex: Female
  Weight: 115 kg

DRUGS (24)
  1. HUMAN IMMUNOGLOBULIN G [Suspect]
     Active Substance: HUMAN IMMUNOGLOBULIN G
     Indication: Immune system disorder
     Dosage: 10 GRAM, 1/WEEK
     Dates: start: 20210811
  2. HUMAN IMMUNOGLOBULIN G [Suspect]
     Active Substance: HUMAN IMMUNOGLOBULIN G
     Indication: Immunodeficiency common variable
  3. HUMAN IMMUNOGLOBULIN G [Suspect]
     Active Substance: HUMAN IMMUNOGLOBULIN G
     Indication: Hypergammaglobulinaemia
  4. ACETAMINOPHEN [Concomitant]
     Active Substance: ACETAMINOPHEN
  5. EPINEPHRINE [Concomitant]
     Active Substance: EPINEPHRINE
  6. MELATONIN [Concomitant]
     Active Substance: MELATONIN
  7. MINERALS\VITAMINS [Concomitant]
     Active Substance: MINERALS\VITAMINS
  8. COENZYME Q10 [Concomitant]
     Active Substance: DIETARY SUPPLEMENT\UBIDECARENONE
  9. LISINOPRIL AND HYDROCHLOROTHIAZIDE [Concomitant]
     Active Substance: HYDROCHLOROTHIAZIDE\LISINOPRIL
  10. CELEXA [Concomitant]
     Active Substance: CITALOPRAM HYDROBROMIDE
  11. VITAMIN B COMPLEX [Concomitant]
     Active Substance: CYANOCOBALAMIN\DEXPANTHENOL\NIACINAMIDE\PYRIDOXINE HYDROCHLORIDE\RIBOFLAVIN 5^-PHOSPHATE SODIUM\THIA
  12. ARTHROTEC [Concomitant]
     Active Substance: DICLOFENAC SODIUM\MISOPROSTOL
  13. ALBUTEROL SULFATE [Concomitant]
     Active Substance: ALBUTEROL SULFATE
  14. PROTONIX [Concomitant]
     Active Substance: PANTOPRAZOLE SODIUM
  15. MAGNESIUM [Concomitant]
     Active Substance: MAGNESIUM
  16. METFORMIN HYDROCHLORIDE [Concomitant]
     Active Substance: METFORMIN HYDROCHLORIDE
  17. CHOLESTYRAMINE [Concomitant]
     Active Substance: CHOLESTYRAMINE
  18. GLYBURIDE [Concomitant]
     Active Substance: GLYBURIDE
  19. DIPHENHYDRAMINE HYDROCHLORIDE [Concomitant]
     Active Substance: DIPHENHYDRAMINE HYDROCHLORIDE
  20. Lmx [Concomitant]
  21. ROSUVASTATIN CALCIUM [Concomitant]
     Active Substance: ROSUVASTATIN CALCIUM
  22. ALBUTEROL SULFATE [Concomitant]
     Active Substance: ALBUTEROL SULFATE
  23. SYMBICORT [Concomitant]
     Active Substance: BUDESONIDE\FORMOTEROL FUMARATE DIHYDRATE
  24. DIPHENHYDRAMINE [Concomitant]
     Active Substance: DIPHENHYDRAMINE

REACTIONS (19)
  - Sepsis [Unknown]
  - Staphylococcal infection [Unknown]
  - Vascular device infection [Unknown]
  - Gastrointestinal disorder [Unknown]
  - Gastrointestinal necrosis [Unknown]
  - Upper limb fracture [Unknown]
  - Road traffic accident [Unknown]
  - Scar [Unknown]
  - Infusion site discharge [Unknown]
  - Weight decreased [Unknown]
  - Inappropriate schedule of product administration [Unknown]
  - Product dose omission issue [Unknown]
  - Device related infection [Unknown]
  - Urinary tract infection [Unknown]
  - Sinusitis [Not Recovered/Not Resolved]
  - Asthma [Unknown]
  - Infusion site bruising [Unknown]
  - Pain [Unknown]
  - Infusion site pain [Unknown]
